FAERS Safety Report 9175231 (Version 2)
Quarter: 2013Q2

REPORT INFORMATION
  Report Type: Spontaneous
  Country: US (occurrence: US)
  Receive Date: 20130320
  Receipt Date: 20130522
  Transmission Date: 20140414
  Serious: Yes (Disabling)
  Sender: FDA-Public Use
  Company Number: US-CELGENEUS-163-21660-13032985

PATIENT
  Age: 59 Year
  Sex: Female
  Weight: 166.2 kg

DRUGS (26)
  1. ABRAXANE [Suspect]
     Indication: ENDOMETRIAL CANCER
     Route: 041
     Dates: start: 20130214
  2. ABRAXANE [Suspect]
     Route: 041
     Dates: start: 20130222
  3. ABRAXANE [Suspect]
     Route: 041
     Dates: start: 20130403
  4. ABRAXANE [Suspect]
     Route: 041
     Dates: start: 20130424
  5. CARBOPLATIN [Suspect]
     Indication: ENDOMETRIAL CANCER
     Route: 041
     Dates: start: 20130214
  6. PALONOSETRON HCL [Concomitant]
     Indication: PRODUCT USED FOR UNKNOWN INDICATION
     Route: 065
     Dates: start: 20130214
  7. DIPHENHYDRAMINE HCL [Concomitant]
     Indication: PRODUCT USED FOR UNKNOWN INDICATION
     Route: 065
     Dates: start: 20130214
  8. DIPHENHYDRAMINE HCL [Concomitant]
     Route: 065
     Dates: start: 20130222
  9. DIPHENHYDRAMINE HCL [Concomitant]
     Route: 065
     Dates: start: 20130313
  10. DIPHENHYDRAMINE HCL [Concomitant]
     Route: 065
     Dates: start: 20130403
  11. RANITIDINE HCL [Concomitant]
     Indication: PRODUCT USED FOR UNKNOWN INDICATION
     Route: 065
     Dates: start: 20130214
  12. ATIVAN [Concomitant]
     Indication: NAUSEA
     Route: 048
     Dates: start: 20130212
  13. ATIVAN [Concomitant]
     Indication: ANXIETY
     Route: 065
     Dates: start: 20130214
  14. DILAUDID [Concomitant]
     Indication: PRODUCT USED FOR UNKNOWN INDICATION
     Route: 065
     Dates: start: 20130214
  15. LISINOPRIL [Concomitant]
     Indication: PRODUCT USED FOR UNKNOWN INDICATION
     Dosage: 40 MILLIGRAM
     Route: 048
     Dates: start: 20130206
  16. METFORMIN HCL [Concomitant]
     Indication: PRODUCT USED FOR UNKNOWN INDICATION
     Dosage: 2000 MILLIGRAM
     Route: 048
     Dates: start: 20130206
  17. METOPROLOL TARTRATE [Concomitant]
     Indication: PRODUCT USED FOR UNKNOWN INDICATION
     Dosage: 100 MILLIGRAM
     Route: 048
     Dates: start: 20130206
  18. HYDROCODONE BITARTRATE/ACETAMINOPHEN [Concomitant]
     Indication: PAIN
     Dosage: 5MG - 325MG
     Route: 048
     Dates: start: 20130206
  19. PROCHLORPERAZINE MALEATE [Concomitant]
     Indication: NAUSEA
     Dosage: 40 MILLIGRAM
     Route: 048
     Dates: start: 20130212
  20. ZOFRAN [Concomitant]
     Indication: NAUSEA
     Dosage: 24 MILLIGRAM
     Route: 048
     Dates: start: 20130222
  21. ZOFRAN [Concomitant]
     Indication: VOMITING
  22. CORTISPORIN OTIC SOLUTION [Concomitant]
     Indication: PRODUCT USED FOR UNKNOWN INDICATION
     Dosage: 3.5-10K-1
     Route: 001
     Dates: start: 20130228
  23. CORTISPORIN OTIC SOLUTION [Concomitant]
     Indication: VOMITING
  24. PREDNISONE [Concomitant]
     Indication: PRODUCT USED FOR UNKNOWN INDICATION
     Dosage: 60 MILLIGRAM
     Route: 048
     Dates: start: 20130301
  25. PREDNISONE [Concomitant]
     Indication: VOMITING
     Route: 048
     Dates: start: 20130403
  26. TAXOL [Concomitant]
     Indication: ENDOMETRIAL CANCER
     Route: 041
     Dates: start: 20130214, end: 20130214

REACTIONS (1)
  - Deafness [Recovered/Resolved with Sequelae]
